FAERS Safety Report 5276397-X (Version None)
Quarter: 2007Q1

REPORT INFORMATION
  Report Type: 
  Country: None (occurrence: None)
  Receive Date: 20061213
  Receipt Date: 20031210
  Transmission Date: 20070707
  Serious: No
  Sender: FDA-Public Use
  Company Number: 2004UW00270

PATIENT
  Age: 40 Year
  Sex: Female

DRUGS (7)
  1. SEROQUEL [Suspect]
     Dosage: 500 MG PO
     Route: 048
  2. DEPAKOTE [Concomitant]
  3. RISPERDAL [Concomitant]
  4. OLANZAPINE [Concomitant]
  5. ABILIFY [Concomitant]
  6. TOPAMAX [Concomitant]
  7. KEPPRA [Concomitant]

REACTIONS (1)
  - TARDIVE DYSKINESIA [None]
